FAERS Safety Report 20697227 (Version 1)
Quarter: 2022Q2

REPORT INFORMATION
  Report Type: Spontaneous
  Country: US (occurrence: None)
  Receive Date: 20220408
  Receipt Date: 20220408
  Transmission Date: 20220721
  Serious: Yes (Hospitalization)
  Sender: FDA-Public Use
  Company Number: None

PATIENT
  Age: 67 Year
  Sex: Female
  Weight: 62.1 kg

DRUGS (2)
  1. FOSTAMATINIB [Suspect]
     Active Substance: FOSTAMATINIB
     Indication: Ovarian cancer
     Dosage: 150 MG BID ORAL?
     Route: 048
     Dates: start: 20220224
  2. TAXOL [Suspect]
     Active Substance: PACLITAXEL

REACTIONS (9)
  - Neutropenia [None]
  - Urinary tract infection [None]
  - Culture urine positive [None]
  - Staphylococcal infection [None]
  - Candida infection [None]
  - Mouth ulceration [None]
  - Oropharyngeal pain [None]
  - Cystitis [None]
  - Mucosal inflammation [None]

NARRATIVE: CASE EVENT DATE: 20220406
